FAERS Safety Report 6929129-0 (Version None)
Quarter: 2010Q3

REPORT INFORMATION
  Report Type: 
  Country: None (occurrence: None)
  Receive Date: 20100812
  Receipt Date: 20100802
  Transmission Date: 20110219
  Serious: Yes (Other)
  Sender: FDA-Public Use
  Company Number: DKLU1064121

PATIENT
  Age: 63 Year
  Sex: Male

DRUGS (3)
  1. INDOCIN [Suspect]
     Indication: CHONDROCALCINOSIS PYROPHOSPHATE
     Dosage: 150 MG MILLIGRAM(S), 1 IN 1 D
  2. ALLOPURINOL [Suspect]
     Indication: CHONDROCALCINOSIS PYROPHOSPHATE
     Dosage: 600 MG MILLIGRAM(S), 1 IN 1 D
  3. PREDNISOLONE [Suspect]
     Indication: CHONDROCALCINOSIS PYROPHOSPHATE
     Dosage: 30 MG MILLIGRAM(S), 1 IN 1 D

REACTIONS (7)
  - ARTHRALGIA [None]
  - ARTHROPATHY [None]
  - CUSHINGOID [None]
  - DRUG INEFFECTIVE [None]
  - GAIT DISTURBANCE [None]
  - JOINT SWELLING [None]
  - WEIGHT INCREASED [None]
